FAERS Safety Report 8116718 (Version 2)
Quarter: 2013Q3

REPORT INFORMATION
  Report Type: Report from Study
  Country: AR (occurrence: AR)
  Receive Date: 20110901
  Receipt Date: 20130731
  Transmission Date: 20140515
  Serious: Yes (Hospitalization, Other)
  Sender: FDA-Public Use
  Company Number: PHHY2011AR74393

PATIENT
  Age: 50 Year
  Sex: Female
  Weight: 150 kg

DRUGS (2)
  1. DIOVAN [Suspect]
     Indication: HYPERTENSION
     Dosage: 1 DF, 320 MG DAILY
     Dates: start: 2005
  2. DIOVAN D [Suspect]
     Dosage: UNK (320MG), UNK

REACTIONS (4)
  - Bronchial disorder [Recovered/Resolved]
  - Oxygen consumption decreased [Recovered/Resolved]
  - Dyspnoea [Recovered/Resolved]
  - Gout [Recovered/Resolved]
